FAERS Safety Report 5929035-4 (Version None)
Quarter: 2008Q4

REPORT INFORMATION
  Report Type: 
  Country: None (occurrence: None)
  Receive Date: 20081024
  Receipt Date: 20081015
  Transmission Date: 20090506
  Serious: Yes (Life-Threatening, Hospitalization, Other)
  Sender: FDA-Public Use
  Company Number: IE-JNJFOC-20080806209

PATIENT
  Age: 5 Decade
  Sex: Female

DRUGS (3)
  1. DAKTARIN ORAL GEL [Suspect]
     Route: 048
  2. DAKTARIN ORAL GEL [Suspect]
     Indication: ORAL CANDIDIASIS
     Route: 048
  3. WARFARIN SODIUM [Interacting]
     Indication: DRUG USE FOR UNKNOWN INDICATION
     Route: 065

REACTIONS (2)
  - DRUG INTERACTION [None]
  - HAEMORRHAGE [None]
